FAERS Safety Report 22100689 (Version 1)
Quarter: 2023Q1

REPORT INFORMATION
  Report Type: Spontaneous
  Country: AR (occurrence: AR)
  Receive Date: 20230316
  Receipt Date: 20230316
  Transmission Date: 20230417
  Serious: Yes (Other)
  Sender: FDA-Public Use
  Company Number: AR-PFIZER INC-PV202300047139

PATIENT
  Age: 75 Year
  Sex: Female

DRUGS (1)
  1. ENBREL [Suspect]
     Active Substance: ETANERCEPT
     Indication: Rheumatoid arthritis
     Dosage: 50 MILLIGRAM, QWK
     Route: 065
     Dates: start: 20120829

REACTIONS (4)
  - Condition aggravated [Not Recovered/Not Resolved]
  - Inflammation [Not Recovered/Not Resolved]
  - Rash pruritic [Not Recovered/Not Resolved]
  - Application site pain [Not Recovered/Not Resolved]

NARRATIVE: CASE EVENT DATE: 20230301
